FAERS Safety Report 17716765 (Version 1)
Quarter: 2020Q2

REPORT INFORMATION
  Report Type: Spontaneous
  Country: GB (occurrence: GB)
  Receive Date: 20200428
  Receipt Date: 20200428
  Transmission Date: 20200714
  Serious: Yes (Hospitalization, Other)
  Sender: FDA-Public Use
  Company Number: GB-SA-2020SA104344

PATIENT
  Age: 37 Year
  Sex: Female

DRUGS (2)
  1. ALEMTUZUMAB [Suspect]
     Active Substance: ALEMTUZUMAB
     Dosage: INFUSION
     Route: 041
  2. ALEMTUZUMAB [Suspect]
     Active Substance: ALEMTUZUMAB
     Indication: RELAPSING-REMITTING MULTIPLE SCLEROSIS
     Dosage: INFUSION
     Route: 041

REACTIONS (11)
  - Nasal congestion [Recovered/Resolved]
  - Neutrophilia [Recovered/Resolved]
  - Sinus tachycardia [Recovered/Resolved]
  - Normocytic anaemia [Recovered/Resolved]
  - Thrombocytosis [Recovered/Resolved]
  - Rash macular [Recovered/Resolved]
  - Arthralgia [Recovered/Resolved]
  - Still^s disease [Recovered/Resolved]
  - Pyrexia [Recovered/Resolved]
  - Synovitis [Recovered/Resolved]
  - Joint swelling [Recovered/Resolved]
